FAERS Safety Report 7487299-2 (Version None)
Quarter: 2011Q2

REPORT INFORMATION
  Report Type: 
  Country: None (occurrence: None)
  Receive Date: 20110518
  Receipt Date: 20110405
  Transmission Date: 20111010
  Serious: Yes (Hospitalization)
  Sender: FDA-Public Use
  Company Number: US-BAYER-201038227NA

PATIENT
  Age: 29 Year
  Sex: Female
  Weight: 54 kg

DRUGS (10)
  1. YAZ [Suspect]
     Indication: CONTRACEPTION
     Dosage: UNK UNK, QD
     Route: 048
     Dates: start: 20060827, end: 20081018
  2. YAZ [Suspect]
     Indication: ACNE
     Dosage: UNK
     Dates: start: 20090201, end: 20091001
  3. YASMIN [Suspect]
     Indication: ACNE
     Dosage: UNK UNK, QD
     Route: 048
     Dates: start: 20040910, end: 20050520
  4. AMBIEN [Concomitant]
     Dosage: UNK
     Dates: start: 20080101
  5. YASMIN [Suspect]
     Indication: OVARIAN CYST
     Dosage: UNK
     Dates: start: 20040910, end: 20050520
  6. AMOXICILLIN [Concomitant]
     Dosage: UNK
     Dates: start: 20080522
  7. PROAIR HFA [Concomitant]
     Dosage: UNK
     Dates: start: 20080122
  8. YAZ [Suspect]
     Indication: OVARIAN CYST
     Dosage: UNK
     Dates: start: 20100315, end: 20100728
  9. YASMIN [Suspect]
     Indication: CONTRACEPTION
     Dosage: UNK
     Dates: start: 20050909, end: 20060218
  10. YASMIN [Suspect]
     Dosage: UNK

REACTIONS (6)
  - PANIC ATTACK [None]
  - DYSGEUSIA [None]
  - BILIARY DYSKINESIA [None]
  - DIZZINESS [None]
  - ABDOMINAL PAIN [None]
  - NAUSEA [None]
